FAERS Safety Report 4508424-9 (Version None)
Quarter: 2004Q4

REPORT INFORMATION
  Report Type: 
  Country: None (occurrence: None)
  Receive Date: 20041123
  Receipt Date: 20040206
  Transmission Date: 20050328
  Serious: No
  Sender: FDA-Public Use
  Company Number: US-GLAXOSMITHKLINE-A0497085A

PATIENT
  Age: 48 Year
  Sex: Female

DRUGS (1)
  1. WELLBUTRIN SR [Suspect]
     Indication: DEPRESSION
     Dosage: 200MG TWICE PER DAY
     Route: 048
     Dates: start: 20040128, end: 20040202

REACTIONS (2)
  - FOREIGN BODY TRAUMA [None]
  - PHARMACEUTICAL PRODUCT COMPLAINT [None]
